FAERS Safety Report 9120476 (Version 1)
Quarter: 2013Q1

REPORT INFORMATION
  Report Type: Spontaneous
  Country: US (occurrence: US)
  Receive Date: 20130226
  Receipt Date: 20130226
  Transmission Date: 20140127
  Serious: Yes (Other)
  Sender: FDA-Public Use
  Company Number: US-GILEAD-2013-0070567

PATIENT
  Age: 23 Year
  Sex: Female

DRUGS (1)
  1. LETAIRIS [Suspect]
     Dosage: UNK

REACTIONS (1)
  - Transaminases increased [Unknown]
